FAERS Safety Report 17515828 (Version 1)
Quarter: 2020Q1

REPORT INFORMATION
  Report Type: Spontaneous
  Country: FR (occurrence: FR)
  Receive Date: 20200309
  Receipt Date: 20200309
  Transmission Date: 20200409
  Serious: Yes (Life-Threatening, Hospitalization, Other)
  Sender: FDA-Public Use
  Company Number: NVSC2020FR064939

PATIENT
  Age: 67 Year
  Sex: Male
  Weight: 90 kg

DRUGS (4)
  1. LEVOMEPROMAZINE HYDROCHLORIDE [Suspect]
     Active Substance: LEVOMEPROMAZINE HYDROCHLORIDE
     Indication: PRODUCT USED FOR UNKNOWN INDICATION
     Dosage: 50 MG
     Route: 065
  2. PROPRANOLOL [Suspect]
     Active Substance: PROPRANOLOL HYDROCHLORIDE
     Indication: MIGRAINE
     Dosage: 1 DF
     Route: 065
  3. PARACETAMOL [Suspect]
     Active Substance: ACETAMINOPHEN
     Indication: PRODUCT USED FOR UNKNOWN INDICATION
     Dosage: UNK
     Route: 065
  4. PYOSTACINE [Suspect]
     Active Substance: PRISTINAMYCIN
     Indication: SINUSITIS
     Dosage: 1 DF, Q12H
     Route: 065
     Dates: start: 20190427, end: 20190428

REACTIONS (6)
  - Respiratory depression [Unknown]
  - Haemorrhoidal haemorrhage [Unknown]
  - Malaise [Unknown]
  - Nausea [Unknown]
  - Pruritus [Unknown]
  - Vomiting [Unknown]

NARRATIVE: CASE EVENT DATE: 201904
